FAERS Safety Report 8376833-6 (Version None)
Quarter: 2012Q2

REPORT INFORMATION
  Report Type: 
  Country: None (occurrence: None)
  Receive Date: 20120522
  Receipt Date: 20120507
  Transmission Date: 20120825
  Serious: No
  Sender: FDA-Public Use
  Company Number: US-ENDO PHARMACEUTICALS INC.-OPER20120457

PATIENT
  Sex: Male
  Weight: 79.45 kg

DRUGS (4)
  1. OPANA ER [Suspect]
     Indication: PAIN
     Route: 048
     Dates: start: 20111005, end: 20111104
  2. OPANA ER [Suspect]
     Route: 048
     Dates: start: 20111213, end: 20120113
  3. OPANA ER [Suspect]
     Route: 048
     Dates: start: 20111104, end: 20111123
  4. OPANA ER [Suspect]
     Route: 048
     Dates: start: 20111123, end: 20111213

REACTIONS (1)
  - DRUG INEFFECTIVE [None]
